FAERS Safety Report 8181185-0 (Version None)
Quarter: 2012Q1

REPORT INFORMATION
  Report Type: 
  Country: None (occurrence: None)
  Receive Date: 20120302
  Receipt Date: 20100325
  Transmission Date: 20120608
  Serious: Yes (Life-Threatening, Hospitalization)
  Sender: FDA-Public Use
  Company Number: JP-GLAXOSMITHKLINE-B0644256A

PATIENT
  Sex: Female
  Weight: 34 kg

DRUGS (18)
  1. TYKERB [Suspect]
     Dosage: 750MG PER DAY
     Route: 048
     Dates: start: 20101125, end: 20101130
  2. ZONISAMIDE [Concomitant]
     Indication: CONVULSION
     Route: 048
     Dates: start: 20100309
  3. TYKERB [Suspect]
     Dosage: 1250MG PER DAY
     Route: 048
     Dates: start: 20100314, end: 20100519
  4. TYKERB [Suspect]
     Dosage: 1250MG PER DAY
     Route: 048
     Dates: start: 20100603, end: 20101124
  5. XELODA [Suspect]
     Indication: PRODUCT USED FOR UNKNOWN INDICATION
     Dosage: 2400MG PER DAY
     Route: 048
     Dates: start: 20100112, end: 20100309
  6. XELODA [Suspect]
     Dosage: 1800MG PER DAY
     Route: 048
     Dates: start: 20101125, end: 20110105
  7. XELODA [Suspect]
     Dosage: 2400MG PER DAY
     Route: 048
     Dates: start: 20110106
  8. GABAPENTIN [Concomitant]
     Route: 048
  9. XELODA [Suspect]
     Dosage: 2400MG PER DAY
     Route: 048
     Dates: start: 20100603, end: 20101124
  10. DEPAKENE [Concomitant]
     Indication: CONVULSION
     Route: 048
     Dates: start: 20100309
  11. PHENYTOIN SODIUM CAP [Concomitant]
     Indication: CONVULSION
     Route: 048
     Dates: start: 20100112, end: 20100308
  12. FAMOTIDINE [Concomitant]
     Indication: GASTRITIS PROPHYLAXIS
     Route: 048
     Dates: start: 20100112
  13. TYKERB [Suspect]
     Indication: BREAST CANCER
     Dosage: 1250MG PER DAY
     Route: 048
     Dates: start: 20100112, end: 20100309
  14. TYKERB [Suspect]
     Dosage: 1000MG PER DAY
     Route: 048
     Dates: start: 20101201, end: 20101207
  15. XELODA [Suspect]
     Dosage: 2400MG PER DAY
     Route: 048
     Dates: start: 20100314, end: 20100519
  16. TYKERB [Suspect]
     Dosage: 1250MG PER DAY
     Route: 048
     Dates: start: 20101215
  17. PHENYTOIN [Suspect]
     Indication: PRODUCT USED FOR UNKNOWN INDICATION
     Route: 065
  18. BETAMETHASONE [Concomitant]
     Indication: BRAIN OEDEMA
     Route: 048
     Dates: start: 20100114

REACTIONS (4)
  - DEHYDRATION [None]
  - DECREASED APPETITE [None]
  - PNEUMONIA [None]
  - INFECTIOUS PLEURAL EFFUSION [None]
